FAERS Safety Report 5450023-9 (Version None)
Quarter: 2007Q3

REPORT INFORMATION
  Report Type: 
  Country: None (occurrence: None)
  Receive Date: 20070912
  Receipt Date: 20070905
  Transmission Date: 20080115
  Serious: Yes (Hospitalization, Disabling, Other)
  Sender: FDA-Public Use
  Company Number: BR-ASTRAZENECA-2006UW13810

PATIENT
  Age: 63 Year
  Sex: Male
  Weight: 95 kg

DRUGS (6)
  1. CASODEX [Suspect]
     Indication: PROSTATE CANCER
     Route: 048
     Dates: start: 20041202, end: 20060101
  2. CASODEX [Suspect]
     Route: 048
     Dates: start: 20060618
  3. CASODEX [Suspect]
     Route: 048
     Dates: start: 20070505
  4. ZORTRIX [Concomitant]
  5. CLONAZEPAM [Concomitant]
     Indication: INSOMNIA
     Route: 048
     Dates: start: 20060101
  6. PASALIX [Concomitant]
     Indication: INSOMNIA
     Route: 048

REACTIONS (31)
  - ABDOMINAL PAIN [None]
  - ABDOMINAL PAIN UPPER [None]
  - AGITATION [None]
  - ALANINE AMINOTRANSFERASE INCREASED [None]
  - ALOPECIA [None]
  - AMNESIA [None]
  - APPLICATION SITE REACTION [None]
  - ASPARTATE AMINOTRANSFERASE INCREASED [None]
  - BACK PAIN [None]
  - BALANCE DISORDER [None]
  - BLOOD PRESSURE INCREASED [None]
  - CHOLELITHIASIS [None]
  - DYSGEUSIA [None]
  - FEAR [None]
  - FOOT FRACTURE [None]
  - GAIT DISTURBANCE [None]
  - HEADACHE [None]
  - HOT FLUSH [None]
  - INSOMNIA [None]
  - LIBIDO DECREASED [None]
  - METASTASES TO BONE [None]
  - NEPHROLITHIASIS [None]
  - PAIN IN EXTREMITY [None]
  - PANIC DISORDER [None]
  - PROSTATITIS [None]
  - SKIN DISCOLOURATION [None]
  - UNEVALUABLE EVENT [None]
  - URETHRAL DISORDER [None]
  - URINARY TRACT PAIN [None]
  - WEIGHT DECREASED [None]
  - WEIGHT INCREASED [None]
